FAERS Safety Report 7576125-9 (Version None)
Quarter: 2011Q2

REPORT INFORMATION
  Report Type: 
  Country: None (occurrence: None)
  Receive Date: 20110628
  Receipt Date: 20110615
  Transmission Date: 20111010
  Serious: Yes (Other)
  Sender: FDA-Public Use
  Company Number: US-ELI_LILLY_AND_COMPANY-US201101007175

PATIENT
  Sex: Female

DRUGS (1)
  1. FORTEO [Suspect]
     Indication: OSTEOPOROSIS
     Dosage: 20 UG, DAILY (1/D)
     Route: 065

REACTIONS (7)
  - BONE PAIN [None]
  - MALAISE [None]
  - PAIN [None]
  - HERNIA [None]
  - ULCER HAEMORRHAGE [None]
  - NERVE COMPRESSION [None]
  - HAEMORRHAGE [None]
